FAERS Safety Report 7492765-X (Version None)
Quarter: 2011Q2

REPORT INFORMATION
  Report Type: 
  Country: None (occurrence: None)
  Receive Date: 20110519
  Receipt Date: 20110414
  Transmission Date: 20111010
  Serious: Yes (Other)
  Sender: FDA-Public Use
  Company Number: US-BAYER-200825389NA

PATIENT
  Age: 70 Year
  Sex: Female

DRUGS (17)
  1. NORTRIPTYLINE HCL [Concomitant]
  2. MAGNEVIST [Suspect]
     Dates: start: 20031105, end: 20031105
  3. CLONIDINE [Concomitant]
  4. MAGNEVIST [Suspect]
     Dates: start: 20040203, end: 20040203
  5. MAGNEVIST [Suspect]
     Dates: start: 20060418, end: 20060418
  6. OPTIMARK [Suspect]
     Indication: NUCLEAR MAGNETIC RESONANCE IMAGING
  7. DILTIAZEM [Concomitant]
  8. OMNISCAN [Suspect]
     Indication: NUCLEAR MAGNETIC RESONANCE IMAGING
  9. MAGNEVIST [Suspect]
     Indication: ANGIOGRAM
     Dates: start: 20031023, end: 20031023
  10. CYCLOSPORINE [Concomitant]
  11. TRAMADOL HCL [Concomitant]
  12. FUROSEMIDE [Concomitant]
  13. MULTIHANCE [Suspect]
     Indication: NUCLEAR MAGNETIC RESONANCE IMAGING
  14. PROHANCE [Suspect]
     Indication: NUCLEAR MAGNETIC RESONANCE IMAGING
  15. MYFORTIC [Concomitant]
  16. HYDRALAZINE HCL [Concomitant]
  17. TRENTAL [Concomitant]

REACTIONS (11)
  - NEPHROGENIC SYSTEMIC FIBROSIS [None]
  - HYPERTENSION [None]
  - SKIN HYPERTROPHY [None]
  - INJURY [None]
  - SKIN INDURATION [None]
  - PAIN [None]
  - JOINT RANGE OF MOTION DECREASED [None]
  - PEAU D'ORANGE [None]
  - MUSCULAR WEAKNESS [None]
  - GAIT DISTURBANCE [None]
  - SKIN TIGHTNESS [None]
